FAERS Safety Report 23526981 (Version 1)
Quarter: 2024Q1

REPORT INFORMATION
  Report Type: Spontaneous
  Country: US (occurrence: US)
  Receive Date: 20240215
  Receipt Date: 20240215
  Transmission Date: 20240409
  Serious: Yes (Hospitalization)
  Sender: FDA-Public Use
  Company Number: US-SA-SAC20240105001042

PATIENT
  Age: 76 Year
  Sex: Female
  Weight: 79.3 kg

DRUGS (7)
  1. DUPIXENT [Suspect]
     Active Substance: DUPILUMAB
     Indication: Asthma
     Dosage: 600 MG 1X
     Route: 058
     Dates: start: 20231205, end: 20231205
  2. MOUNJARO [Concomitant]
     Active Substance: TIRZEPATIDE
  3. ATORVASTATIN [Concomitant]
     Active Substance: ATORVASTATIN
  4. ROPINIROLE [Concomitant]
     Active Substance: ROPINIROLE
  5. OZEMPIC [Concomitant]
     Active Substance: SEMAGLUTIDE
  6. HUMALOG [Concomitant]
     Active Substance: INSULIN LISPRO
  7. TRESIBA [Concomitant]
     Active Substance: INSULIN DEGLUDEC

REACTIONS (1)
  - Illness [Unknown]
